FAERS Safety Report 8770512 (Version 1)
Quarter: 2012Q4

REPORT INFORMATION
  Report Type: 
  Country: US (occurrence: US)
  Receive Date: 20120906
  Receipt Date: 20120906
  Transmission Date: 20130627
  Serious: Yes (Other)
  Sender: FDA-Public Use
  Company Number: US-PFIZER INC-2012217715

PATIENT
  Age: 40 Year

DRUGS (1)
  1. NEURONTIN [Suspect]
     Dosage: 600 mg, 3x/day (One PO TID)
     Route: 048

REACTIONS (2)
  - Injury [Unknown]
  - Impaired work ability [Unknown]
